FAERS Safety Report 18639374 (Version 1)
Quarter: 2020Q4

REPORT INFORMATION
  Report Type: Spontaneous
  Country: GB (occurrence: GB)
  Receive Date: 20201219
  Receipt Date: 20201219
  Transmission Date: 20210114
  Serious: Yes (Hospitalization)
  Sender: FDA-Public Use
  Company Number: GB-009507513-2012GBR008632

PATIENT
  Age: 62 Year
  Sex: Male
  Weight: 79.15 kg

DRUGS (17)
  1. PEMBROLIZUMAB. [Suspect]
     Active Substance: PEMBROLIZUMAB
     Indication: METASTASES TO BONE
     Route: 042
     Dates: start: 20200910, end: 20200929
  2. ASPIRIN. [Concomitant]
     Active Substance: ASPIRIN
  3. ADCAL-D3 [Concomitant]
     Active Substance: CALCIUM CARBONATE\CHOLECALCIFEROL
  4. NOVOMIX [Concomitant]
     Active Substance: INSULIN ASPART
  5. BALNEUM PLUS [Concomitant]
  6. FENOFIBRATE. [Concomitant]
     Active Substance: FENOFIBRATE
  7. DENOSUMAB [Concomitant]
     Active Substance: DENOSUMAB
  8. ATORVASTATIN CALCIUM. [Concomitant]
     Active Substance: ATORVASTATIN CALCIUM
  9. OPTIVE [Concomitant]
     Active Substance: CARBOXYMETHYLCELLULOSE SODIUM\GLYCERIN
  10. CORTICOSTEROIDS (UNSPECIFIED) [Concomitant]
     Active Substance: UNSPECIFIED INGREDIENT
  11. AMLODIPINE MALEATE [Concomitant]
     Active Substance: AMLODIPINE MALEATE
  12. CANDESARTAN. [Concomitant]
     Active Substance: CANDESARTAN
  13. DOXAZOSIN [Concomitant]
     Active Substance: DOXAZOSIN MESYLATE
  14. GANFORT [Concomitant]
     Active Substance: BIMATOPROST\TIMOLOL
  15. DORZOLAMIDE HYDROCHLORIDE. [Concomitant]
     Active Substance: DORZOLAMIDE HYDROCHLORIDE
  16. LINAGLIPTIN [Concomitant]
     Active Substance: LINAGLIPTIN
  17. DECAPEPTYL (ACETATE) [Concomitant]
     Active Substance: TRIPTORELIN ACETATE

REACTIONS (5)
  - Acute kidney injury [Recovering/Resolving]
  - Hypocalcaemia [Unknown]
  - Myocarditis [Unknown]
  - Pneumonitis [Recovered/Resolved]
  - Acute myocardial infarction [Unknown]

NARRATIVE: CASE EVENT DATE: 20200929
